FAERS Safety Report 7033746-X (Version None)
Quarter: 2010Q4

REPORT INFORMATION
  Report Type: 
  Country: None (occurrence: None)
  Receive Date: 20101007
  Receipt Date: 20100928
  Transmission Date: 20110411
  Serious: Yes (Hospitalization)
  Sender: FDA-Public Use
  Company Number: FR-ABBOTT-10P-056-0674373-00

PATIENT
  Sex: Male

DRUGS (4)
  1. KALETRA [Suspect]
     Indication: DRUG EXPOSURE DURING PREGNANCY
     Route: 064
  2. COMBIVIR [Suspect]
     Indication: DRUG EXPOSURE DURING PREGNANCY
     Route: 064
  3. RETROVIR [Suspect]
     Indication: HUMAN IMMUNODEFICIENCY VIRUS TRANSMISSION
     Route: 048
     Dates: start: 20100411, end: 20100523
  4. RETROVIR [Suspect]
     Indication: PROPHYLAXIS

REACTIONS (2)
  - CONGENITAL NYSTAGMUS [None]
  - DRUG EXPOSURE DURING PREGNANCY [None]
